FAERS Safety Report 21652577 (Version 1)
Quarter: 2022Q4

REPORT INFORMATION
  Report Type: Report from Study
  Country: US (occurrence: US)
  Receive Date: 20221128
  Receipt Date: 20221128
  Transmission Date: 20230112
  Serious: Yes (Other)
  Sender: FDA-Public Use
  Company Number: US-MYLANLABS-2022M1133642

PATIENT

DRUGS (5)
  1. FLUOROURACIL [Suspect]
     Active Substance: FLUOROURACIL
     Indication: Neoplasm
     Dosage: 2400 MILLIGRAM/SQ. METER
     Route: 042
  2. FLUOROURACIL [Suspect]
     Active Substance: FLUOROURACIL
     Dosage: 400 MILLIGRAM/SQ. METER
     Route: 042
  3. SELINEXOR [Suspect]
     Active Substance: SELINEXOR
     Indication: Neoplasm
     Dosage: 40 MILLIGRAM, QW
     Route: 065
  4. IRINOTECAN [Suspect]
     Active Substance: IRINOTECAN
     Indication: Neoplasm
     Dosage: 180 MILLIGRAM/SQ. METER
     Route: 065
  5. LEUCOVORIN [Suspect]
     Active Substance: LEUCOVORIN
     Indication: Neoplasm
     Dosage: 400 MILLIGRAM/SQ. METER (ON DAY 1 AND DAY 14)
     Route: 065

REACTIONS (1)
  - Febrile neutropenia [Unknown]
